FAERS Safety Report 16970021 (Version 8)
Quarter: 2021Q1

REPORT INFORMATION
  Report Type: Other
  Country: DE (occurrence: DE)
  Receive Date: 20191029
  Receipt Date: 20210208
  Transmission Date: 20210419
  Serious: Yes (Hospitalization)
  Sender: FDA-Public Use
  Company Number: DE-ROCHE-2227714

PATIENT
  Age: 47 Year
  Sex: Female
  Weight: 80 kg

DRUGS (16)
  1. CANDESARTAN. [Concomitant]
     Active Substance: CANDESARTAN
  2. INSIDON [Concomitant]
     Active Substance: OPIPRAMOL HYDROCHLORIDE
  3. YASMIN [Concomitant]
     Active Substance: DROSPIRENONE\ETHINYL ESTRADIOL
  4. CANDESARTAN. [Concomitant]
     Active Substance: CANDESARTAN
  5. CETIRIZIN [Concomitant]
     Active Substance: CETIRIZINE HYDROCHLORIDE
  6. L?THYROXIN [Concomitant]
     Active Substance: LEVOTHYROXINE SODIUM
  7. METFORMIN [Concomitant]
     Active Substance: METFORMIN HYDROCHLORIDE
     Dosage: 0?0?1
  8. L?THYROXIN [Concomitant]
     Active Substance: LEVOTHYROXINE SODIUM
  9. METFORMIN [Concomitant]
     Active Substance: METFORMIN HYDROCHLORIDE
     Dosage: 1?0?1
  10. AUBAGIO [Concomitant]
     Active Substance: TERIFLUNOMIDE
  11. OCREVUS [Suspect]
     Active Substance: OCRELIZUMAB
     Indication: RELAPSING-REMITTING MULTIPLE SCLEROSIS
     Route: 042
     Dates: start: 20180515, end: 20180515
  12. OCREVUS [Suspect]
     Active Substance: OCRELIZUMAB
     Route: 042
     Dates: start: 20180529, end: 20180529
  13. YASMIN [Concomitant]
     Active Substance: DROSPIRENONE\ETHINYL ESTRADIOL
     Indication: CONTRACEPTION
  14. OCREVUS [Suspect]
     Active Substance: OCRELIZUMAB
     Route: 042
     Dates: start: 20190613, end: 20190613
  15. VALSARTAN. [Concomitant]
     Active Substance: VALSARTAN
  16. OCREVUS [Suspect]
     Active Substance: OCRELIZUMAB
     Route: 042
     Dates: start: 20181129, end: 20181129

REACTIONS (10)
  - Meningitis [Unknown]
  - Cough [Recovered/Resolved]
  - Hypersensitivity [Recovered/Resolved]
  - Mental disorder [Recovered/Resolved]
  - Loss of libido [Recovered/Resolved]
  - Epilepsy [Recovered/Resolved]
  - Encephalitis [Recovered/Resolved]
  - Oropharyngeal pain [Recovered/Resolved]
  - Fatigue [Recovered/Resolved]
  - Metrorrhagia [Recovered/Resolved]

NARRATIVE: CASE EVENT DATE: 20180515
